FAERS Safety Report 19921259 (Version 2)
Quarter: 2021Q4

REPORT INFORMATION
  Report Type: Report from Study
  Country: US (occurrence: US)
  Receive Date: 20211006
  Receipt Date: 20211025
  Transmission Date: 20220303
  Serious: Yes (Hospitalization)
  Sender: FDA-Public Use
  Company Number: US-ROCHE-2927179

PATIENT
  Age: 65 Year
  Sex: Female
  Weight: 43.32 kg

DRUGS (14)
  1. ATEZOLIZUMAB [Suspect]
     Active Substance: ATEZOLIZUMAB
     Indication: K-ras gene mutation
     Dosage: THE LAST DOSE PRIOR TO THE EVENT OF ATEZOLIZUMAB WAS 07/SEP/2021
     Route: 041
     Dates: start: 20210816
  2. AMG-510 [Suspect]
     Active Substance: AMG-510
     Indication: K-ras gene mutation
     Route: 048
     Dates: start: 20210816
  3. ASPIRIN [Concomitant]
     Active Substance: ASPIRIN
     Dates: start: 2002
  4. LEVOTHYROXINE [Concomitant]
     Active Substance: LEVOTHYROXINE
     Dates: start: 2006
  5. METOPROLOL [Concomitant]
     Active Substance: METOPROLOL
     Dates: start: 2020
  6. NICOTINE [Concomitant]
     Active Substance: NICOTINE
     Dates: start: 2020
  7. OXYCODONE [Concomitant]
     Active Substance: OXYCODONE
     Dates: start: 2020
  8. SPIRONOLACTONE [Concomitant]
     Active Substance: SPIRONOLACTONE
     Dates: start: 2020
  9. TRAZODONE [Concomitant]
     Active Substance: TRAZODONE HYDROCHLORIDE
     Dates: start: 2020
  10. CANNABIS SATIVA SUBSP. INDICA TOP [Concomitant]
     Active Substance: CANNABIS SATIVA SUBSP. INDICA TOP
     Dates: start: 2020
  11. ATORVASTATIN [Concomitant]
     Active Substance: ATORVASTATIN
     Dates: start: 2002
  12. TYLENOL [Concomitant]
     Active Substance: ACETAMINOPHEN
     Dates: start: 2000
  13. COLACE [Concomitant]
     Active Substance: DOCUSATE SODIUM
     Dates: start: 2020
  14. MORPHINE SULFATE [Concomitant]
     Active Substance: MORPHINE SULFATE
     Dates: start: 20210811

REACTIONS (3)
  - Diarrhoea [Not Recovered/Not Resolved]
  - Dehydration [Recovered/Resolved with Sequelae]
  - Colitis [Recovered/Resolved]

NARRATIVE: CASE EVENT DATE: 20210920
